FAERS Safety Report 9404926 (Version 1)
Quarter: 2013Q3

REPORT INFORMATION
  Report Type: Spontaneous
  Country: US (occurrence: US)
  Receive Date: 20130717
  Receipt Date: 20130717
  Transmission Date: 20140515
  Serious: No
  Sender: FDA-Public Use
  Company Number: US-BRISTOL-MYERS SQUIBB COMPANY-18977561

PATIENT
  Age: 66 Year
  Sex: Male
  Weight: 77.1 kg

DRUGS (11)
  1. YERVOY [Suspect]
     Indication: MALIGNANT MELANOMA
     Dates: start: 20130328
  2. MEGESTROL ACETATE [Suspect]
     Indication: APPETITE DISORDER
  3. LEVOTHYROXINE [Concomitant]
  4. DAPSONE [Concomitant]
  5. TYLENOL #3 [Concomitant]
     Indication: PAIN
     Dosage: 1DF=TYLENOL#3/CODEINE 300MG
  6. CODEINE [Concomitant]
     Indication: PAIN
  7. COLACE [Concomitant]
  8. CALCIUM [Concomitant]
  9. VITAMIN D [Concomitant]
  10. ONDANSETRON [Concomitant]
     Indication: NAUSEA
  11. ATIVAN [Concomitant]
     Indication: STRESS

REACTIONS (1)
  - Low density lipoprotein increased [Unknown]
